FAERS Safety Report 7770277-3 (Version None)
Quarter: 2011Q3

REPORT INFORMATION
  Report Type: 
  Country: None (occurrence: None)
  Receive Date: 20110922
  Receipt Date: 20100115
  Transmission Date: 20111222
  Serious: No
  Sender: FDA-Public Use
  Company Number: US-ASTRAZENECA-2009SE08891

PATIENT
  Age: 469 Month
  Sex: Male
  Weight: 81.2 kg

DRUGS (6)
  1. ABILIFY [Concomitant]
     Dates: start: 20080701
  2. SEROQUEL [Suspect]
     Dosage: 100 TO 400 MG
     Route: 048
     Dates: start: 20090128
  3. RISPERDAL [Concomitant]
     Dates: start: 20080701
  4. WELLBUTRIN XL [Concomitant]
     Dosage: 150 TO 300 MG
     Dates: start: 20090128
  5. LEXAPRO [Concomitant]
     Dates: start: 20080701
  6. SEROQUEL [Suspect]
     Indication: DEPRESSION
     Route: 048
     Dates: start: 20080101

REACTIONS (2)
  - GENERAL PHYSICAL HEALTH DETERIORATION [None]
  - DIABETES MELLITUS [None]
